FAERS Safety Report 11416532 (Version 3)
Quarter: 2015Q4

REPORT INFORMATION
  Report Type: Report from Study
  Country: FR (occurrence: FR)
  Receive Date: 20150825
  Receipt Date: 20151106
  Transmission Date: 20160304
  Serious: Yes (Hospitalization, Other)
  Sender: FDA-Public Use
  Company Number: FR-JNJFOC-20150813840

PATIENT
  Age: 58 Year
  Sex: Male
  Weight: 77 kg

DRUGS (5)
  1. MEDROL [Concomitant]
     Active Substance: METHYLPREDNISOLONE
     Indication: ADRENOCORTICAL STEROID THERAPY
     Dosage: 3 BOLUS OF 240 MG
     Route: 065
     Dates: start: 20150617, end: 20150626
  2. METHOTREXATE [Concomitant]
     Active Substance: METHOTREXATE
     Indication: ANKYLOSING SPONDYLITIS
     Route: 048
     Dates: start: 201506
  3. PARACETAMOL [Concomitant]
     Active Substance: ACETAMINOPHEN
     Indication: ANKYLOSING SPONDYLITIS
     Route: 065
  4. SIMPONI [Suspect]
     Active Substance: GOLIMUMAB
     Indication: ANKYLOSING SPONDYLITIS
     Route: 058
     Dates: start: 20150625, end: 20150625
  5. LOVATEX [Concomitant]
     Indication: PAIN
     Route: 065

REACTIONS (8)
  - Arthralgia [Recovering/Resolving]
  - Paralysis [Recovering/Resolving]
  - Musculoskeletal pain [Recovering/Resolving]
  - Musculoskeletal pain [Recovering/Resolving]
  - Pollakiuria [Recovering/Resolving]
  - Prostate cancer [Unknown]
  - Joint swelling [Recovering/Resolving]
  - Dyspnoea [Recovering/Resolving]

NARRATIVE: CASE EVENT DATE: 20150626
